FAERS Safety Report 23353190 (Version 2)
Quarter: 2025Q2

REPORT INFORMATION
  Report Type: Spontaneous
  Country: US (occurrence: US)
  Receive Date: 20231230
  Receipt Date: 20250430
  Transmission Date: 20250716
  Serious: No
  Sender: Kenvue
  Company Number: US-JNJFOC-20231282772

PATIENT
  Sex: Female

DRUGS (1)
  1. TYLENOL [Suspect]
     Active Substance: ACETAMINOPHEN
     Indication: Product used for unknown indication
     Route: 048

REACTIONS (1)
  - Exposure during pregnancy [Unknown]
